FAERS Safety Report 8427573-6 (Version None)
Quarter: 2012Q2

REPORT INFORMATION
  Report Type: 
  Country: None (occurrence: None)
  Receive Date: 20120323
  Receipt Date: 20111202
  Transmission Date: 20120825
  Serious: Yes (Other)
  Sender: FDA-Public Use
  Company Number: 163-21880-11120623

PATIENT
  Age: 62 Year
  Sex: Male

DRUGS (4)
  1. REVLIMID [Suspect]
     Indication: MULTIPLE MYELOMA
     Dosage: 25 MG, DAILY FOR 21 DAYS, OFF 7 DAYS, PO ; 25 MG, DAILY FOR 14 DAYS EVERY 28 DAYS, PO
     Route: 048
     Dates: start: 20111109
  2. REVLIMID [Suspect]
     Indication: MULTIPLE MYELOMA
     Dosage: 25 MG, DAILY FOR 21 DAYS, OFF 7 DAYS, PO ; 25 MG, DAILY FOR 14 DAYS EVERY 28 DAYS, PO
     Route: 048
     Dates: start: 20111201
  3. DEXAMETHASONE [Concomitant]
  4. VELCADE [Concomitant]

REACTIONS (1)
  - RASH [None]
